FAERS Safety Report 9896254 (Version 1)
Quarter: 2014Q1

REPORT INFORMATION
  Report Type: Spontaneous
  Country: US (occurrence: US)
  Receive Date: 20140213
  Receipt Date: 20140213
  Transmission Date: 20141002
  Serious: No
  Sender: FDA-Public Use
  Company Number: US-BRISTOL-MYERS SQUIBB COMPANY-17433749

PATIENT
  Age: 67 Year
  Sex: Female

DRUGS (9)
  1. ORENCIA [Suspect]
     Route: 042
  2. CALCIUM [Concomitant]
  3. CELEBREX [Concomitant]
  4. FOLIC ACID [Concomitant]
  5. METHOTREXATE [Concomitant]
  6. MULTIVITAMINS [Concomitant]
  7. PREMPRO [Concomitant]
  8. ULTRACET [Concomitant]
  9. RISEDRONATE SODIUM [Concomitant]

REACTIONS (1)
  - Rash [Unknown]
